FAERS Safety Report 11069459 (Version 1)
Quarter: 2015Q2

REPORT INFORMATION
  Report Type: Report from Study
  Country: US (occurrence: US)
  Receive Date: 20150427
  Receipt Date: 20150427
  Transmission Date: 20150821
  Serious: Yes (Other)
  Sender: FDA-Public Use
  Company Number: US-JNJFOC-20150416195

PATIENT
  Sex: Female
  Weight: 27.67 kg

DRUGS (10)
  1. REMICADE [Suspect]
     Active Substance: INFLIXIMAB
     Indication: RHEUMATOID ARTHRITIS
     Dosage: STARTED 14 YEARS PRIOR TO THE REPORT AND STOPPED 1 YEAR AFTER STARTING IT.
     Route: 042
  2. CYMBALTA [Concomitant]
     Active Substance: DULOXETINE HYDROCHLORIDE
     Indication: FIBROMYALGIA
     Route: 065
  3. BENADRYL [Concomitant]
     Active Substance: DIPHENHYDRAMINE HYDROCHLORIDE
     Indication: PREMEDICATION
     Route: 065
  4. REMICADE [Suspect]
     Active Substance: INFLIXIMAB
     Indication: RHEUMATOID ARTHRITIS
     Route: 042
     Dates: start: 201405, end: 201408
  5. PREDNISONE. [Concomitant]
     Active Substance: PREDNISONE
     Indication: SWELLING
     Route: 065
  6. VITAMIN D [Concomitant]
     Active Substance: CHOLECALCIFEROL
     Route: 065
  7. CALCIUM [Concomitant]
     Active Substance: CALCIUM
     Route: 065
  8. FUROSEMIDE. [Concomitant]
     Active Substance: FUROSEMIDE
     Indication: SWELLING
     Route: 065
  9. PREDNISONE. [Concomitant]
     Active Substance: PREDNISONE
     Indication: ABASIA
     Route: 065
  10. MAGNESIUM [Concomitant]
     Active Substance: MAGNESIUM
     Route: 065

REACTIONS (11)
  - Hot flush [Unknown]
  - Chills [Unknown]
  - Vomiting [Unknown]
  - Heart rate increased [Unknown]
  - Nausea [Unknown]
  - Fatigue [Unknown]
  - Urinary incontinence [Unknown]
  - Parosmia [Unknown]
  - Infusion related reaction [Unknown]
  - Abasia [Unknown]
  - Headache [Unknown]

NARRATIVE: CASE EVENT DATE: 2014
